FAERS Safety Report 20232779 (Version 1)
Quarter: 2021Q4

REPORT INFORMATION
  Report Type: Spontaneous
  Country: US (occurrence: None)
  Receive Date: 20211223
  Receipt Date: 20211223
  Transmission Date: 20220304
  Serious: No
  Sender: FDA-Public Use
  Company Number: None

PATIENT
  Age: 63 Year
  Sex: Female

DRUGS (1)
  1. ICATIBANT ACETATE [Suspect]
     Active Substance: ICATIBANT ACETATE
     Indication: Complement fixation abnormal
     Dosage: FREQUENCY : AS NEEDED;?
     Route: 058
     Dates: start: 201911

REACTIONS (1)
  - Gastrointestinal oedema [None]

NARRATIVE: CASE EVENT DATE: 20211215
